FAERS Safety Report 25685804 (Version 1)
Quarter: 2025Q3

REPORT INFORMATION
  Report Type: Spontaneous
  Country: GB (occurrence: GB)
  Receive Date: 20250815
  Receipt Date: 20250815
  Transmission Date: 20251020
  Serious: Yes (Other)
  Sender: MYLAN
  Company Number: GB-MHRA-36405165

PATIENT
  Sex: Male

DRUGS (1)
  1. FINASTERIDE [Suspect]
     Active Substance: FINASTERIDE
     Indication: Product used for unknown indication

REACTIONS (5)
  - Erectile dysfunction [Unknown]
  - Depression [Unknown]
  - Feeling abnormal [Unknown]
  - Ejaculation failure [Unknown]
  - Libido decreased [Unknown]
